FAERS Safety Report 10989195 (Version 1)
Quarter: 2015Q2

REPORT INFORMATION
  Report Type: Spontaneous
  Country: IT (occurrence: IT)
  Receive Date: 20150406
  Receipt Date: 20150406
  Transmission Date: 20150821
  Serious: Yes (Other)
  Sender: FDA-Public Use
  Company Number: IT-AUROBINDO-AUR-APL-2015-02119

PATIENT
  Age: 19 Year
  Sex: Female

DRUGS (1)
  1. ACICLOVIR TABLETS 800 MG [Suspect]
     Active Substance: ACYCLOVIR
     Indication: ORAL HERPES
     Dosage: (200MGX5) 1000 MG, DAILY
     Route: 048
     Dates: start: 20141216, end: 20141219

REACTIONS (2)
  - Urticaria [Recovering/Resolving]
  - Hypersensitivity [Recovering/Resolving]

NARRATIVE: CASE EVENT DATE: 20141219
